FAERS Safety Report 6836960-9 (Version None)
Quarter: 2010Q3

REPORT INFORMATION
  Report Type: 
  Country: None (occurrence: None)
  Receive Date: 20100713
  Receipt Date: 20070426
  Transmission Date: 20110219
  Serious: No
  Sender: FDA-Public Use
  Company Number: US-PFIZER INC-2007035090

PATIENT
  Age: 70 Year
  Sex: Female
  Weight: 42.272 kg

DRUGS (2)
  1. CHANTIX [Suspect]
     Indication: SMOKING CESSATION THERAPY
     Dates: start: 20070101, end: 20070424
  2. ACETYLSALICYLIC ACID [Concomitant]
     Dates: start: 20070101

REACTIONS (3)
  - BRONCHITIS [None]
  - NAUSEA [None]
  - VOMITING [None]
